FAERS Safety Report 4283636-0 (Version None)
Quarter: 2004Q1

REPORT INFORMATION
  Report Type: 
  Country: None (occurrence: None)
  Receive Date: 20040129
  Receipt Date: 20040129
  Transmission Date: 20041129
  Serious: Yes (Hospitalization)
  Sender: FDA-Public Use
  Company Number: None

PATIENT
  Age: 80 Year
  Sex: Male
  Weight: 82.1 kg

DRUGS (6)
  1. ASPIRIN [Suspect]
     Indication: TRANSIENT ISCHAEMIC ATTACK
     Dosage: 81 MG QD 2-3 WKS
  2. WARFARIN SODIUM [Suspect]
     Dosage: 5 MG PO QD
     Route: 048
  3. LIPITOR [Concomitant]
  4. GLYBURIDE [Concomitant]
  5. HYTRIN [Concomitant]
  6. SULAR [Concomitant]

REACTIONS (8)
  - BACK PAIN [None]
  - BALANCE DISORDER [None]
  - DIZZINESS [None]
  - GASTRIC ULCER [None]
  - GASTROINTESTINAL HAEMORRHAGE [None]
  - HYPOTENSION [None]
  - SPEECH DISORDER [None]
  - TACHYCARDIA [None]
